FAERS Safety Report 12113574 (Version 1)
Quarter: 2016Q1

REPORT INFORMATION
  Report Type: Spontaneous
  Country: FR (occurrence: FR)
  Receive Date: 20160225
  Receipt Date: 20160225
  Transmission Date: 20160526
  Serious: Yes (Other)
  Sender: FDA-Public Use
  Company Number: FR-ACCORD-037947

PATIENT
  Sex: Female

DRUGS (2)
  1. NALTREXONE/NALTREXONE HYDROCHLORIDE [Suspect]
     Active Substance: NALTREXONE
     Indication: ALCOHOLISM
  2. ACAMPROSATE/ACAMPROSATE CALCIUM [Suspect]
     Active Substance: ACAMPROSATE CALCIUM
     Indication: ALCOHOLISM

REACTIONS (4)
  - Treatment failure [Unknown]
  - Fatigue [None]
  - Off label use [Unknown]
  - Dizziness [None]
